FAERS Safety Report 4305937-X (Version None)
Quarter: 2004Q1

REPORT INFORMATION
  Report Type: 
  Country: None (occurrence: None)
  Receive Date: 20040225
  Receipt Date: 20040213
  Transmission Date: 20041129
  Serious: Yes (Life-Threatening)
  Sender: FDA-Public Use
  Company Number: 204724

PATIENT
  Age: 60 Year
  Sex: Female

DRUGS (2)
  1. RITUXAN [Suspect]
     Indication: LYMPHOMA
     Dosage: 500 MG, 1/WEEK
     Dates: start: 20040108, end: 20040115
  2. PREDNISOLONE [Suspect]

REACTIONS (2)
  - INTESTINAL PERFORATION [None]
  - TUMOUR LYSIS SYNDROME [None]
